FAERS Safety Report 22064762 (Version 14)
Quarter: 2025Q1

REPORT INFORMATION
  Report Type: Report from Study
  Country: CA (occurrence: CA)
  Receive Date: 20230306
  Receipt Date: 20250205
  Transmission Date: 20250408
  Serious: Yes (Other)
  Sender: TAKEDA
  Company Number: CA-TAKEDA-2021TUS065104

PATIENT
  Age: 57 Year
  Sex: Male

DRUGS (20)
  1. VEDOLIZUMAB [Suspect]
     Active Substance: VEDOLIZUMAB
     Indication: Colitis ulcerative
  2. VEDOLIZUMAB [Suspect]
     Active Substance: VEDOLIZUMAB
  3. VEDOLIZUMAB [Suspect]
     Active Substance: VEDOLIZUMAB
  4. VEDOLIZUMAB [Suspect]
     Active Substance: VEDOLIZUMAB
     Dosage: 300 MILLIGRAM, Q4WEEKS
     Dates: start: 20230104
  5. VEDOLIZUMAB [Suspect]
     Active Substance: VEDOLIZUMAB
     Dosage: 300 MILLIGRAM, Q4WEEKS
     Dates: start: 20230201
  6. VEDOLIZUMAB [Suspect]
     Active Substance: VEDOLIZUMAB
     Dosage: 300 MILLIGRAM, Q4WEEKS
  7. VEDOLIZUMAB [Suspect]
     Active Substance: VEDOLIZUMAB
     Dosage: 300 MILLIGRAM, Q4WEEKS
  8. VEDOLIZUMAB [Suspect]
     Active Substance: VEDOLIZUMAB
     Dosage: 300 MILLIGRAM, Q4WEEKS
  9. VEDOLIZUMAB [Suspect]
     Active Substance: VEDOLIZUMAB
     Dosage: 300 MILLIGRAM, Q4WEEKS
  10. VEDOLIZUMAB [Suspect]
     Active Substance: VEDOLIZUMAB
     Dosage: 300 MILLIGRAM, Q4WEEKS
  11. VEDOLIZUMAB [Suspect]
     Active Substance: VEDOLIZUMAB
     Dosage: 300 MILLIGRAM, Q4WEEKS
  12. VEDOLIZUMAB [Suspect]
     Active Substance: VEDOLIZUMAB
     Dosage: 300 MILLIGRAM, Q4WEEKS
  13. VEDOLIZUMAB [Suspect]
     Active Substance: VEDOLIZUMAB
     Dosage: 300 MILLIGRAM, Q4WEEKS
  14. Salofalk [Concomitant]
  15. Salofalk [Concomitant]
  16. Salofalk [Concomitant]
     Dosage: UNK UNK, QD
  17. PREVACID [Concomitant]
     Active Substance: LANSOPRAZOLE
  18. CALCIUM\VITAMIN D [Concomitant]
     Active Substance: CALCIUM\VITAMIN D
  19. PENTASA [Concomitant]
     Active Substance: MESALAMINE
  20. IRON [Concomitant]
     Active Substance: IRON

REACTIONS (21)
  - Colitis ulcerative [Not Recovered/Not Resolved]
  - Haematochezia [Recovered/Resolved]
  - Barrett^s oesophagus [Unknown]
  - Sinusitis [Recovering/Resolving]
  - COVID-19 [Unknown]
  - Abnormal faeces [Unknown]
  - Drug ineffective [Unknown]
  - Abdominal rigidity [Unknown]
  - Off label use [Unknown]
  - Dehydration [Unknown]
  - Gastrointestinal inflammation [Unknown]
  - Oesophagitis [Unknown]
  - Frequent bowel movements [Recovering/Resolving]
  - Mucous stools [Unknown]
  - Stress [Unknown]
  - Diarrhoea [Unknown]
  - Abdominal pain [Unknown]
  - Nasopharyngitis [Unknown]
  - Nausea [Unknown]
  - Fatigue [Unknown]
  - Influenza [Recovered/Resolved]

NARRATIVE: CASE EVENT DATE: 20230201
